FAERS Safety Report 26009251 (Version 1)
Quarter: 2025Q4

REPORT INFORMATION
  Report Type: Spontaneous
  Country: US (occurrence: US)
  Receive Date: 20251107
  Receipt Date: 20251107
  Transmission Date: 20260117
  Serious: No
  Sender: ALEXION PHARMACEUTICALS
  Company Number: US-AstraZeneca-CH-00983414A

PATIENT
  Sex: Male

DRUGS (2)
  1. FASENRA [Suspect]
     Active Substance: BENRALIZUMAB
     Indication: Asthma
     Dosage: 1 DOSAGE FORM, Q4W
     Dates: start: 202509
  2. FASENRA [Suspect]
     Active Substance: BENRALIZUMAB

REACTIONS (3)
  - Asthma [Not Recovered/Not Resolved]
  - Asthma-chronic obstructive pulmonary disease overlap syndrome [Unknown]
  - Malaise [Unknown]

NARRATIVE: CASE EVENT DATE: 20251001
